FAERS Safety Report 19129082 (Version 1)
Quarter: 2021Q2

REPORT INFORMATION
  Report Type: Report from Study
  Country: US (occurrence: US)
  Receive Date: 20210413
  Receipt Date: 20210413
  Transmission Date: 20210717
  Serious: Yes (Death, Hospitalization, Other)
  Sender: FDA-Public Use
  Company Number: US-INCYTE CORPORATION-2021IN002895

PATIENT

DRUGS (1)
  1. JAKAFI [Suspect]
     Active Substance: RUXOLITINIB
     Indication: MYELOFIBROSIS
     Dosage: 10 MILLIGRAM, QD
     Route: 065
     Dates: start: 20200901

REACTIONS (4)
  - Pulmonary embolism [Fatal]
  - Coagulopathy [Unknown]
  - Internal haemorrhage [Fatal]
  - Thrombosis [Fatal]

NARRATIVE: CASE EVENT DATE: 20210314
